FAERS Safety Report 14044233 (Version 4)
Quarter: 2018Q1

REPORT INFORMATION
  Report Type: Spontaneous
  Country: US (occurrence: US)
  Receive Date: 20171004
  Receipt Date: 20180308
  Transmission Date: 20180508
  Serious: Yes (Other)
  Sender: FDA-Public Use
  Company Number: US-PHARMING GROUP N.V.-PHAUS2017000174

PATIENT

DRUGS (3)
  1. RUCONEST [Suspect]
     Active Substance: HUMAN C1-ESTERASE INHIBITOR
     Dosage: 6300 IU, AS NEEDED FOR BREAKTHROUGH ATTACKS
     Route: 042
  2. RUCONEST [Suspect]
     Active Substance: HUMAN C1-ESTERASE INHIBITOR
     Indication: HEREDITARY ANGIOEDEMA
     Dosage: 4200 IU, PRN
     Route: 042
     Dates: start: 2015
  3. RUCONEST [Suspect]
     Active Substance: HUMAN C1-ESTERASE INHIBITOR
     Indication: PROPHYLAXIS
     Dosage: 6300 IU, EVERY 3 DAYS, FOR PROPHYLACTIC DOSE
     Route: 042

REACTIONS (2)
  - Off label use [Unknown]
  - Lipoma [Unknown]

NARRATIVE: CASE EVENT DATE: 2015
